FAERS Safety Report 25101199 (Version 1)
Quarter: 2025Q1

REPORT INFORMATION
  Report Type: Spontaneous
  Country: US (occurrence: US)
  Receive Date: 20250320
  Receipt Date: 20250320
  Transmission Date: 20250409
  Serious: Yes (Other)
  Sender: TEVA
  Company Number: US-TEVA-VS-3308352

PATIENT
  Age: 79 Year
  Sex: Female
  Weight: 86.183 kg

DRUGS (1)
  1. UZEDY [Suspect]
     Active Substance: RISPERIDONE
     Indication: Bipolar disorder
     Dosage: STRENGTH: 100/0.28MG/ML
     Route: 065
     Dates: start: 20241203

REACTIONS (19)
  - Lower limb fracture [Not Recovered/Not Resolved]
  - Hypoaesthesia [Unknown]
  - Pain in extremity [Not Recovered/Not Resolved]
  - Gait disturbance [Unknown]
  - Drug intolerance [Unknown]
  - Injection site nodule [Not Recovered/Not Resolved]
  - Tongue movement disturbance [Unknown]
  - Synovial cyst [Not Recovered/Not Resolved]
  - Diplopia [Not Recovered/Not Resolved]
  - Tremor [Unknown]
  - Back pain [Not Recovered/Not Resolved]
  - Asthenia [Not Recovered/Not Resolved]
  - Genital cyst [Not Recovered/Not Resolved]
  - Anxiety [Unknown]
  - Dizziness [Not Recovered/Not Resolved]
  - Head discomfort [Not Recovered/Not Resolved]
  - Blood pressure fluctuation [Unknown]
  - Thyroid disorder [Not Recovered/Not Resolved]
  - Product use in unapproved indication [Unknown]

NARRATIVE: CASE EVENT DATE: 20250203
